FAERS Safety Report 13583756 (Version 1)
Quarter: 2017Q2

REPORT INFORMATION
  Report Type: Spontaneous
  Country: US (occurrence: US)
  Receive Date: 20170526
  Receipt Date: 20170526
  Transmission Date: 20170830
  Serious: Yes (Other)
  Sender: FDA-Public Use
  Company Number: US-BEH-2017080722

PATIENT
  Sex: Male
  Weight: 18.59 kg

DRUGS (5)
  1. HIZENTRA [Suspect]
     Active Substance: HUMAN IMMUNOGLOBULIN G
     Indication: COMBINED IMMUNODEFICIENCY
     Dosage: 2 G, UNK
     Route: 058
     Dates: start: 20150715
  2. AUGMENTIN [Concomitant]
     Active Substance: AMOXICILLIN\CLAVULANATE POTASSIUM
  3. LMX                                /00033401/ [Concomitant]
  4. HIZENTRA [Suspect]
     Active Substance: HUMAN IMMUNOGLOBULIN G
     Dosage: UNK
     Route: 058
  5. EPIPEN JR [Concomitant]
     Active Substance: EPINEPHRINE

REACTIONS (2)
  - Asthenia [Unknown]
  - Neoplasm malignant [Unknown]
